FAERS Safety Report 9350389 (Version 1)
Quarter: 2013Q2

REPORT INFORMATION
  Report Type: Spontaneous
  Country: US (occurrence: None)
  Receive Date: 20130613
  Receipt Date: 20130613
  Transmission Date: 20140414
  Serious: Yes (Hospitalization)
  Sender: FDA-Public Use
  Company Number: None

PATIENT
  Age: 67 Year
  Sex: Male
  Weight: 50.5 kg

DRUGS (4)
  1. CLOPIDOGREL [Suspect]
     Indication: ANTIPLATELET THERAPY
     Dosage: 75 MG EVERY DAY PO
     Route: 048
     Dates: start: 20130524, end: 20130601
  2. CLOPIDOGREL [Suspect]
     Indication: VASCULAR OPERATION
     Dosage: 75 MG EVERY DAY PO
     Route: 048
     Dates: start: 20130524, end: 20130601
  3. CLOPIDOGREL [Suspect]
     Indication: ANTIPLATELET THERAPY
     Dosage: 75 MG EVERY DAY PO
     Route: 048
     Dates: start: 20130524, end: 20130601
  4. CLOPIDOGREL [Suspect]
     Indication: VASCULAR OPERATION
     Dosage: 75 MG EVERY DAY PO
     Route: 048
     Dates: start: 20130524, end: 20130601

REACTIONS (14)
  - Extremity necrosis [None]
  - Deep vein thrombosis [None]
  - Hypoaesthesia [None]
  - Post procedural haematoma [None]
  - Peripheral embolism [None]
  - Haemorrhagic anaemia [None]
  - Chronic obstructive pulmonary disease [None]
  - Coronary artery disease [None]
  - Oesophageal haemorrhage [None]
  - Malnutrition [None]
  - Metabolic acidosis [None]
  - Systemic inflammatory response syndrome [None]
  - Peripheral arterial occlusive disease [None]
  - Gastric haemorrhage [None]
